FAERS Safety Report 23439435 (Version 5)
Quarter: 2024Q2

REPORT INFORMATION
  Report Type: Report from Study
  Country: US (occurrence: US)
  Receive Date: 20240124
  Receipt Date: 20240622
  Transmission Date: 20240715
  Serious: Yes (Hospitalization, Other)
  Sender: FDA-Public Use
  Company Number: US-ABBVIE-5603309

PATIENT
  Age: 56 Year
  Sex: Female
  Weight: 97 kg

DRUGS (30)
  1. HUMIRA [Suspect]
     Active Substance: ADALIMUMAB
     Indication: Rheumatoid arthritis
     Dosage: FORM STRENGTH: 40 MG?CITRATE FREE
     Route: 058
     Dates: start: 202110, end: 2022
  2. HUMIRA [Suspect]
     Active Substance: ADALIMUMAB
     Dosage: FORM STRENGTH: 40 MG?CITRATE FREE
     Route: 058
     Dates: start: 20101005
  3. HUMIRA [Suspect]
     Active Substance: ADALIMUMAB
     Dosage: FORM STRENGTH: 40 MG?CITRATE FREE
     Route: 058
     Dates: start: 20231220
  4. CANNABIS SATIVA SUBSP. INDICA TOP [Concomitant]
     Active Substance: CANNABIS SATIVA SUBSP. INDICA TOP
     Indication: Sleep disorder
     Dosage: TIME INTERVAL: AS NECESSARY: MEDICAL MARAJUANA GUMMIES, ONLY AT BEDTIME
     Route: 065
  5. SERTRALINE [Concomitant]
     Active Substance: SERTRALINE HYDROCHLORIDE
     Indication: Anxiety
  6. PANTOPRAZOLE [Concomitant]
     Active Substance: PANTOPRAZOLE
     Indication: Gastrooesophageal reflux disease
     Dosage: FORM STRENGTH: 40 MG
     Route: 065
  7. RECLAST [Concomitant]
     Active Substance: ZOLEDRONIC ACID
     Indication: Osteoporosis
     Dosage: ONE TIME PER YEAR
     Route: 042
     Dates: start: 202106
  8. RECLAST [Concomitant]
     Active Substance: ZOLEDRONIC ACID
     Indication: Osteoporosis
     Route: 042
     Dates: start: 202311
  9. PRILOSEC [Concomitant]
     Active Substance: OMEPRAZOLE MAGNESIUM
     Indication: Gastrooesophageal reflux disease
     Route: 065
  10. GABAPENTIN [Concomitant]
     Active Substance: GABAPENTIN
     Indication: Neuropathy peripheral
     Route: 065
  11. TIZANIDINE [Concomitant]
     Active Substance: TIZANIDINE
     Indication: Back pain
     Dosage: 1/2 TAB AT BEDTIME
     Route: 048
  12. TIZANIDINE [Concomitant]
     Active Substance: TIZANIDINE
     Indication: Back pain
     Dosage: 1/2 TAB AT BEDTIME, FORM STRENGTH: 4 MG
     Route: 048
  13. CHONDROITIN SULFATE (BOVINE)\GLUCOSAMINE HYDROCHLORIDE [Concomitant]
     Active Substance: CHONDROITIN SULFATE (BOVINE)\GLUCOSAMINE HYDROCHLORIDE
     Indication: Product used for unknown indication
     Dosage: GLUCOSAMINE 1500MG/CHONDROITIN 1100  DAILY
     Route: 065
  14. LEVOTHYROXINE [Concomitant]
     Active Substance: LEVOTHYROXINE\LEVOTHYROXINE SODIUM
     Indication: Hypothyroidism
     Dosage: FORM STRENGTH: 175 MICROGRAM
  15. TRIMETHOPRIM [Concomitant]
     Active Substance: TRIMETHOPRIM
     Indication: Product used for unknown indication
     Dosage: 1 MON., WED., + FRIDAY (100 MG), FORM STRENGTH: 100 MG
     Route: 048
     Dates: start: 20240317
  16. L Lysine [Concomitant]
     Indication: Product used for unknown indication
     Dosage: FORM STRENGTH: 500 MILLIGRAM
     Route: 065
  17. NEUPOGEN [Concomitant]
     Active Substance: FILGRASTIM
     Indication: Neutrophil count decreased
     Dosage: (ONCE/MO. IF INDICATED)(ZAXRIO)?INJ PRN BELOW 1.0 ABSOLUTE NEUTROPHIL
     Route: 065
  18. ZOLOFT [Concomitant]
     Active Substance: SERTRALINE HYDROCHLORIDE
     Indication: Product used for unknown indication
     Route: 065
  19. VITAMIN D3 [Concomitant]
     Active Substance: CHOLECALCIFEROL
     Indication: Product used for unknown indication
     Dosage: FORM STRENGTH: 2000 UNIT
     Route: 065
  20. FLAXSEED [Concomitant]
     Active Substance: FLAX SEED
     Indication: Product used for unknown indication
     Dosage: FORM STRENGTH: 1000 MG BY MOUTH NIGHTLY
     Route: 048
  21. NEURONTIN [Concomitant]
     Active Substance: GABAPENTIN
     Indication: Product used for unknown indication
     Dosage: 400MG AT BEDTIME
  22. NEURONTIN [Concomitant]
     Active Substance: GABAPENTIN
     Indication: Product used for unknown indication
     Dosage: 400 MG AT BEDTIME
     Route: 065
  23. CYANOCOBALAMIN\DEXPANTHENOL\NIACINAMIDE\PYRIDOXINE HYDROCHLORIDE\RIBOF [Concomitant]
     Active Substance: CYANOCOBALAMIN\DEXPANTHENOL\NIACINAMIDE\PYRIDOXINE HYDROCHLORIDE\RIBOFLAVIN 5^-PHOSPHATE SODIUM\THIA
     Indication: Product used for unknown indication
     Route: 065
  24. COVID-19 vaccine [Concomitant]
     Indication: COVID-19 immunisation
     Dosage: 1ST DOSE ONE IN ONCE
     Route: 030
  25. COVID-19 vaccine [Concomitant]
     Indication: COVID-19 immunisation
     Dosage: 2ND DOSE ONE IN ONCE
     Route: 030
  26. COVID-19 vaccine [Concomitant]
     Indication: COVID-19 immunisation
     Dosage: 3RD DOSE ONE IN ONCE
     Route: 030
  27. INFLUENZA VIRUS VACCINE [Concomitant]
     Active Substance: INFLUENZA VIRUS VACCINE
     Indication: Product used for unknown indication
     Dates: start: 20230929
  28. PNEUMOCOCCAL VACCINE POLYVALENT NOS [Concomitant]
     Active Substance: PNEUMOCOCCAL VACCINE POLYVALENT
     Indication: Product used for unknown indication
     Route: 065
     Dates: start: 20221208
  29. CIPRO [Suspect]
     Active Substance: CIPROFLOXACIN\CIPROFLOXACIN HYDROCHLORIDE
     Indication: Urinary tract infection
     Dosage: CIPROFLOXACIN
     Route: 065
     Dates: start: 20240303, end: 20240313
  30. MAGNESIUM [Concomitant]
     Active Substance: MAGNESIUM
     Indication: Product used for unknown indication
     Dosage: 500 MG BY MOUTH NIGHTLY, FORM STRENGTH: 500 MG
     Route: 048

REACTIONS (28)
  - Nephrolithiasis [Recovering/Resolving]
  - Osteoarthritis [Recovering/Resolving]
  - Renal atrophy [Recovering/Resolving]
  - Urosepsis [Recovering/Resolving]
  - Procedural haemorrhage [Recovered/Resolved]
  - Urinary tract infection [Recovering/Resolving]
  - Hydronephrosis [Recovering/Resolving]
  - Klebsiella infection [Recovering/Resolving]
  - Polymyalgia rheumatica [Unknown]
  - Blister [Not Recovered/Not Resolved]
  - COVID-19 [Unknown]
  - Pain [Not Recovered/Not Resolved]
  - Muscle spasms [Recovered/Resolved]
  - Rheumatoid arthritis [Recovered/Resolved]
  - Vomiting [Recovered/Resolved]
  - Nephrolithiasis [Not Recovered/Not Resolved]
  - Pyrexia [Unknown]
  - Laboratory test abnormal [Unknown]
  - Hip arthroplasty [Unknown]
  - Limb reconstructive surgery [Unknown]
  - Calculus urinary [Unknown]
  - Limb reconstructive surgery [Unknown]
  - Rheumatoid arthritis [Recovered/Resolved]
  - Essential tremor [Unknown]
  - Spinal compression fracture [Unknown]
  - Hip arthroplasty [Unknown]
  - Eye laser surgery [Unknown]
  - Large granular lymphocytosis [Unknown]

NARRATIVE: CASE EVENT DATE: 20131101
